FAERS Safety Report 25764913 (Version 1)
Quarter: 2025Q3

REPORT INFORMATION
  Report Type: Spontaneous
  Country: US (occurrence: US)
  Receive Date: 20250905
  Receipt Date: 20250905
  Transmission Date: 20251021
  Serious: No
  Sender: TARO
  Company Number: US-TARO PHARMACEUTICALS USA INC.-2024TAR02855

PATIENT

DRUGS (1)
  1. METRONIDAZOLE [Suspect]
     Active Substance: METRONIDAZOLE
     Indication: Vaginal infection
     Dosage: UNK, 1 APPLICATORFUL, BEDTIME
     Route: 067
     Dates: start: 202407, end: 202407

REACTIONS (2)
  - Drug ineffective [Unknown]
  - Product dispensing error [Unknown]
